FAERS Safety Report 6131912-9 (Version None)
Quarter: 2009Q1

REPORT INFORMATION
  Report Type: 
  Country: None (occurrence: None)
  Receive Date: 20090325
  Receipt Date: 20090311
  Transmission Date: 20090719
  Serious: Yes (Congenital Anomaly, Other)
  Sender: FDA-Public Use
  Company Number: US-PFIZER INC-2007095375

PATIENT
  Sex: Male

DRUGS (2)
  1. ZOLOFT [Suspect]
     Indication: POSTPARTUM DEPRESSION
     Route: 064
     Dates: start: 20040901
  2. ZOLOFT [Suspect]
     Indication: ANXIETY

REACTIONS (9)
  - DEAFNESS [None]
  - DEVELOPMENTAL DELAY [None]
  - DRUG EXPOSURE DURING PREGNANCY [None]
  - DYSPNOEA [None]
  - FALLOT'S TETRALOGY [None]
  - GASTROOESOPHAGEAL REFLUX DISEASE [None]
  - LARYNGEAL STENOSIS [None]
  - VOCAL CORD DISORDER [None]
  - WEIGHT GAIN POOR [None]
